FAERS Safety Report 24876290 (Version 5)
Quarter: 2025Q1

REPORT INFORMATION
  Report Type: Spontaneous
  Country: US (occurrence: US)
  Receive Date: 20250123
  Receipt Date: 20250218
  Transmission Date: 20250409
  Serious: Yes (Death, Other)
  Sender: ALEXION PHARMACEUTICALS
  Company Number: US-AstraZeneca-CH-00786111A

PATIENT
  Age: 88 Year

DRUGS (2)
  1. SEROQUEL [Suspect]
     Active Substance: QUETIAPINE FUMARATE
     Route: 065
  2. SEROQUEL [Suspect]
     Active Substance: QUETIAPINE FUMARATE
     Route: 065

REACTIONS (6)
  - Renal failure [Fatal]
  - Depression [Unknown]
  - Therapy change [Unknown]
  - Intentional product misuse [Unknown]
  - Communication disorder [Unknown]
  - Cardiac disorder [Unknown]
